FAERS Safety Report 8053282-1 (Version None)
Quarter: 2012Q1

REPORT INFORMATION
  Report Type: 
  Country: None (occurrence: None)
  Receive Date: 20120118
  Receipt Date: 20110916
  Transmission Date: 20120608
  Serious: Yes (Other)
  Sender: FDA-Public Use
  Company Number: US-WATSON-2011-15144

PATIENT
  Age: 3 Year
  Sex: Female

DRUGS (1)
  1. GELNIQUE [Suspect]
     Indication: HYPERTONIC BLADDER
     Dosage: 1 APPLICATION PER DAY
     Route: 061
     Dates: start: 20110810, end: 20110813

REACTIONS (1)
  - HALLUCINATION [None]
